FAERS Safety Report 18488097 (Version 3)
Quarter: 2020Q4

REPORT INFORMATION
  Report Type: Spontaneous
  Country: ES (occurrence: ES)
  Receive Date: 20201111
  Receipt Date: 20201228
  Transmission Date: 20210114
  Serious: Yes (Death, Hospitalization, Other)
  Sender: FDA-Public Use
  Company Number: ES-ALXN-A202016399

PATIENT
  Sex: Female

DRUGS (8)
  1. OMEPRAZOLE. [Concomitant]
     Active Substance: OMEPRAZOLE
     Indication: PRODUCT USED FOR UNKNOWN INDICATION
     Dosage: 20 UNK, QD (AT BREAKFAST)
     Route: 065
  2. HIDROFEROL [Concomitant]
     Active Substance: CALCIFEDIOL
     Indication: PRODUCT USED FOR UNKNOWN INDICATION
     Dosage: 1 UNK, Q2W (EVERY 15 DAYS) FOR 3 MONTHS
     Route: 048
  3. PENILEVEL                          /00000903/ [Concomitant]
     Active Substance: PENICILLIN G SODIUM
     Indication: PRODUCT USED FOR UNKNOWN INDICATION
     Dosage: 500 MG, Q12H
     Route: 065
  4. SOLIRIS [Suspect]
     Active Substance: ECULIZUMAB
     Indication: ANAEMIA
     Dosage: 600 MG, UNK
     Route: 042
     Dates: start: 20100518, end: 20100609
  5. ACFOL [Concomitant]
     Active Substance: FOLIC ACID
     Indication: PRODUCT USED FOR UNKNOWN INDICATION
     Dosage: 5 MG, TIW (MONDAY, WEDNESDAY, FRIDAY)
     Route: 065
     Dates: start: 20080825
  6. SOLIRIS [Suspect]
     Active Substance: ECULIZUMAB
     Indication: OFF LABEL USE
     Dosage: 900 MG, Q2W
     Route: 042
     Dates: start: 20100630, end: 20201021
  7. EXJADE [Concomitant]
     Active Substance: DEFERASIROX
     Indication: PRODUCT USED FOR UNKNOWN INDICATION
     Dosage: 360 MG, Q8H
     Route: 065
  8. SOLIRIS [Suspect]
     Active Substance: ECULIZUMAB
     Indication: ABDOMINAL PAIN
     Dosage: 900 MG, SINGLE
     Route: 042
     Dates: start: 20100616, end: 20100616

REACTIONS (13)
  - Staphylococcal sepsis [Fatal]
  - Pulmonary mass [Unknown]
  - Pulmonary cavitation [Unknown]
  - Back pain [Unknown]
  - Staphylococcal bacteraemia [Unknown]
  - Condition aggravated [Unknown]
  - Thrombocytopenia [Unknown]
  - Muscle contracture [Unknown]
  - Arthralgia [Unknown]
  - Gastrointestinal haemorrhage [Unknown]
  - Off label use [Recovered/Resolved]
  - Anaemia [Unknown]
  - Neutropenia [Unknown]

NARRATIVE: CASE EVENT DATE: 20100518
